FAERS Safety Report 7523943-9 (Version None)
Quarter: 2011Q2

REPORT INFORMATION
  Report Type: 
  Country: None (occurrence: None)
  Receive Date: 20110603
  Receipt Date: 20110519
  Transmission Date: 20111010
  Serious: Yes (Other)
  Sender: FDA-Public Use
  Company Number: JP-GENENTECH-319652

PATIENT
  Sex: Female
  Weight: 43 kg

DRUGS (14)
  1. PURSENNID [Concomitant]
  2. MUCODYNE [Concomitant]
  3. OMEPRAZOLE [Concomitant]
  4. MEPTIN [Concomitant]
  5. XOLAIR [Suspect]
     Indication: ASTHMA
     Dosage: UNK
     Route: 058
     Dates: start: 20091126
  6. THEO-DUR [Concomitant]
  7. SALBUTAMOL SULFATE [Concomitant]
  8. ZOLPIDEM [Concomitant]
  9. ONON [Concomitant]
  10. ALLELOCK [Concomitant]
  11. PULMICORT [Concomitant]
  12. SEREVENT [Concomitant]
  13. HOKUNALIN [Concomitant]
  14. GASMOTIN [Concomitant]

REACTIONS (1)
  - ASTHMA [None]
